FAERS Safety Report 19232603 (Version 1)
Quarter: 2021Q2

REPORT INFORMATION
  Report Type: Spontaneous
  Country: US (occurrence: US)
  Receive Date: 20210507
  Receipt Date: 20210507
  Transmission Date: 20210717
  Serious: No
  Sender: FDA-Public Use
  Company Number: US-009507513-2104USA008447

PATIENT
  Age: 92 Year
  Sex: Female
  Weight: 67.58 kg

DRUGS (15)
  1. COUMADIN [Concomitant]
     Active Substance: WARFARIN SODIUM
     Dosage: 2.5 MILLIGRAM, QD
  2. VANCOMYCIN [Suspect]
     Active Substance: VANCOMYCIN
  3. LEVOTHYROXINE SODIUM. [Concomitant]
     Active Substance: LEVOTHYROXINE SODIUM
     Dosage: 75 MICROGRAM, QD
  4. CHOLECALCIFEROL [Concomitant]
     Active Substance: CHOLECALCIFEROL
     Dosage: 5000, QD
  5. PHENERGAN (DIBROMPROPAMIDINE ISETHIONATE (+) PROMETHAZINE) [Concomitant]
     Active Substance: DIBROMPROPAMIDINE ISETHIONATE\PROMETHAZINE HYDROCHLORIDE
     Dosage: UNK UNK, PRN
  6. METOPROLOL. [Concomitant]
     Active Substance: METOPROLOL
     Dosage: 25 MILLIGRAM, QD
  7. ALLOPURINOL. [Concomitant]
     Active Substance: ALLOPURINOL
     Dosage: 10 MILLIGRAM, QD
  8. MIRALAX [Concomitant]
     Active Substance: POLYETHYLENE GLYCOL 3350
     Dosage: UNK, QD
  9. LIPITOR [Concomitant]
     Active Substance: ATORVASTATIN CALCIUM
     Dosage: 10 MILLIGRAM, QD
  10. LISINOPRIL. [Concomitant]
     Active Substance: LISINOPRIL
     Dosage: 20 MILLIGRAM, QD
  11. TYLENOL [Concomitant]
     Active Substance: ACETAMINOPHEN
     Dosage: UNK UNK, PRN
  12. TRAMADOL HYDROCHLORIDE. [Concomitant]
     Active Substance: TRAMADOL HYDROCHLORIDE
     Dosage: 1 DOSAGE FORM, PRN
     Route: 048
  13. DIFICID [Suspect]
     Active Substance: FIDAXOMICIN
     Indication: CLOSTRIDIUM DIFFICILE INFECTION
     Dosage: 200 MILLIGRAM, TWICE A DAY
     Route: 048
     Dates: start: 20210427
  14. AMLODIPINE [Concomitant]
     Active Substance: AMLODIPINE BESYLATE
     Dosage: 10 MILLIGRAM, QD
  15. OMEPRAZOLE. [Concomitant]
     Active Substance: OMEPRAZOLE
     Dosage: UNK UNK, QD

REACTIONS (2)
  - Anal incontinence [Unknown]
  - Inappropriate schedule of product administration [Unknown]

NARRATIVE: CASE EVENT DATE: 20210428
